FAERS Safety Report 21536309 (Version 1)
Quarter: 2022Q4

REPORT INFORMATION
  Report Type: Spontaneous
  Country: US (occurrence: None)
  Receive Date: 20221031
  Receipt Date: 20221031
  Transmission Date: 20230113
  Serious: Yes (Hospitalization)
  Sender: FDA-Public Use
  Company Number: None

PATIENT

DRUGS (1)
  1. HEPARIN [Suspect]
     Active Substance: HEPARIN SODIUM

REACTIONS (2)
  - Drug hypersensitivity [None]
  - Heparin-induced thrombocytopenia test positive [None]

NARRATIVE: CASE EVENT DATE: 20210802
